FAERS Safety Report 13258580 (Version 1)
Quarter: 2017Q1

REPORT INFORMATION
  Report Type: Spontaneous
  Country: IT (occurrence: IT)
  Receive Date: 20170222
  Receipt Date: 20170222
  Transmission Date: 20170428
  Serious: Yes (Life-Threatening)
  Sender: FDA-Public Use
  Company Number: IT-ROCHE-1896986

PATIENT
  Age: 75 Year
  Sex: Male

DRUGS (1)
  1. ROCEFIN [Suspect]
     Active Substance: CEFTRIAXONE SODIUM
     Indication: CHRONIC OBSTRUCTIVE PULMONARY DISEASE
     Dosage: 1G/3.5ML 1 VIAL POWDER + 1 VIAL SOLVENT
     Route: 030

REACTIONS (2)
  - Cardiac arrest [Unknown]
  - Shock [Unknown]

NARRATIVE: CASE EVENT DATE: 20170214
